FAERS Safety Report 16362930 (Version 7)
Quarter: 2020Q1

REPORT INFORMATION
  Report Type: Report from Study
  Country: US (occurrence: US)
  Receive Date: 20190528
  Receipt Date: 20200217
  Transmission Date: 20200409
  Serious: Yes (Hospitalization)
  Sender: FDA-Public Use
  Company Number: PHHO2019US005594

PATIENT
  Age: 8 Year
  Sex: Male

DRUGS (19)
  1. INC424A [Suspect]
     Active Substance: RUXOLITINIB
     Indication: ACUTE LYMPHOCYTIC LEUKAEMIA
     Dosage: 70 MG, BID
     Route: 048
     Dates: start: 20181120
  2. INC424A [Suspect]
     Active Substance: RUXOLITINIB
     Dosage: 75 MG, BID
     Route: 048
     Dates: start: 20190321
  3. VINCRISTINE [Suspect]
     Active Substance: VINCRISTINE
     Dosage: 2 MG, ONCE/SINGLE
     Route: 042
     Dates: start: 20190705
  4. MERCAPTOPURINE. [Suspect]
     Active Substance: MERCAPTOPURINE
     Indication: ACUTE LYMPHOCYTIC LEUKAEMIA
     Dosage: 250 MG, QW
     Route: 048
     Dates: start: 20181120
  5. VINCRISTINE [Suspect]
     Active Substance: VINCRISTINE
     Indication: ACUTE LYMPHOCYTIC LEUKAEMIA
     Dosage: 2 MG, ONCE/SINGLE
     Route: 042
     Dates: start: 20181204
  6. DEXAMETHASONE. [Suspect]
     Active Substance: DEXAMETHASONE
     Indication: ACUTE LYMPHOCYTIC LEUKAEMIA
     Dosage: 8 MG, BID
     Route: 048
     Dates: start: 20190425
  7. MERCAPTOPURINE. [Suspect]
     Active Substance: MERCAPTOPURINE
     Dosage: UNK
     Route: 048
     Dates: start: 20190705
  8. MERCAPTOPURINE. [Suspect]
     Active Substance: MERCAPTOPURINE
     Dosage: 250 MG, QW
     Route: 048
     Dates: start: 20190215
  9. THIOGUANINE [Suspect]
     Active Substance: THIOGUANINE
     Indication: ACUTE LYMPHOCYTIC LEUKAEMIA
     Dosage: 620 MILLIGRAM, WEEKLY
     Route: 048
     Dates: start: 20190523, end: 20190604
  10. PEGASPARGASE [Suspect]
     Active Substance: PEGASPARGASE
     Indication: ACUTE LYMPHOCYTIC LEUKAEMIA
     Dosage: 3600 IU, ONCE/SINGLE
     Route: 042
     Dates: start: 20181204, end: 20190429
  11. INC424A [Suspect]
     Active Substance: RUXOLITINIB
     Dosage: UNK
     Route: 048
     Dates: start: 20190705
  12. DOXORUBICIN [Suspect]
     Active Substance: DOXORUBICIN
     Dosage: 38 MILLIGRAM, ONCE
     Route: 042
     Dates: start: 20190502
  13. METHOTREXATE SODIUM. [Suspect]
     Active Substance: METHOTREXATE SODIUM
     Indication: ACUTE LYMPHOCYTIC LEUKAEMIA
     Dosage: 12 MG, ONCE/SINGLE
     Route: 037
     Dates: start: 20181120
  14. METHOTREXATE SODIUM. [Suspect]
     Active Substance: METHOTREXATE SODIUM
     Dosage: 12 MG
     Route: 037
     Dates: start: 20190705
  15. CYCLOPHOSPHAMIDE. [Suspect]
     Active Substance: CYCLOPHOSPHAMIDE
     Indication: ACUTE LYMPHOCYTIC LEUKAEMIA
     Dosage: 1500 MG, ONCE/SINGLE
     Route: 042
     Dates: start: 20181120
  16. DOXORUBICIN [Suspect]
     Active Substance: DOXORUBICIN
     Indication: ACUTE LYMPHOCYTIC LEUKAEMIA
     Dosage: 38 MG, ONCE/SINGLE
     Route: 042
     Dates: start: 20190425
  17. INC424A [Suspect]
     Active Substance: RUXOLITINIB
     Dosage: 75 MG, BID
     Route: 048
     Dates: start: 20190425, end: 20190508
  18. CYTARABINE. [Suspect]
     Active Substance: CYTARABINE
     Indication: ACUTE LYMPHOCYTIC LEUKAEMIA
     Dosage: 110 MG, ONCE/SINGLE
     Route: 042
     Dates: start: 20181120, end: 20190110
  19. PEGASPARGASE [Suspect]
     Active Substance: PEGASPARGASE
     Dosage: 3700 IU
     Route: 065
     Dates: start: 20190705

REACTIONS (3)
  - Anorectal cellulitis [Recovered/Resolved]
  - Neutrophil count decreased [Recovered/Resolved]
  - Febrile neutropenia [Recovered/Resolved]

NARRATIVE: CASE EVENT DATE: 20190517
